FAERS Safety Report 6501653-4 (Version None)
Quarter: 2009Q4

REPORT INFORMATION
  Report Type: 
  Country: None (occurrence: None)
  Receive Date: 20091214
  Receipt Date: 20091214
  Transmission Date: 20100525
  Serious: Yes (Hospitalization)
  Sender: FDA-Public Use
  Company Number: None

PATIENT
  Age: 69 Year
  Sex: Male
  Weight: 62 kg

DRUGS (7)
  1. CETUXIMAB [Suspect]
     Indication: HEAD AND NECK CANCER
     Dosage: 400 MG/M2, LOADING, IV : 250 MG/M2, IV
     Route: 042
     Dates: start: 20091111
  2. CETUXIMAB [Suspect]
     Indication: HEAD AND NECK CANCER
     Dosage: 400 MG/M2, LOADING, IV : 250 MG/M2, IV
     Route: 042
     Dates: start: 20091118
  3. SENNA [Concomitant]
  4. LEVOTHYROXINE SODIUM [Concomitant]
  5. VITAMIN D [Concomitant]
  6. PRILOSEC [Concomitant]
  7. OXYCODONE [Concomitant]

REACTIONS (3)
  - DISEASE PROGRESSION [None]
  - FAILURE TO THRIVE [None]
  - PAIN [None]
